FAERS Safety Report 12130098 (Version 1)
Quarter: 2016Q1

REPORT INFORMATION
  Report Type: Spontaneous
  Country: US (occurrence: US)
  Receive Date: 20160229
  Receipt Date: 20160229
  Transmission Date: 20160526
  Serious: No
  Sender: FDA-Public Use
  Company Number: US-ACORDA-ACO_24494_2010

PATIENT
  Sex: Female
  Weight: 85 kg

DRUGS (10)
  1. HYDROCODONE [Concomitant]
     Active Substance: HYDROCODONE
     Dates: start: 2007
  2. TYLENOL EXTRA STRENGTH [Concomitant]
     Active Substance: ACETAMINOPHEN
     Indication: HEADACHE
     Dosage: DF
  3. AMPYRA [Suspect]
     Active Substance: DALFAMPRIDINE
     Indication: GAIT DISTURBANCE
  4. XANAX [Concomitant]
     Active Substance: ALPRAZOLAM
     Dates: start: 2003
  5. NUVIGIL [Concomitant]
     Active Substance: ARMODAFINIL
     Dates: start: 2009
  6. AMPYRA [Suspect]
     Active Substance: DALFAMPRIDINE
     Indication: MULTIPLE SCLEROSIS RELAPSE
     Dosage: 10 MG, BID
     Route: 048
     Dates: start: 201005, end: 201006
  7. GEODON [Concomitant]
     Active Substance: ZIPRASIDONE HYDROCHLORIDE\ZIPRASIDONE MESYLATE
     Dates: start: 2007
  8. PROTONIX [Concomitant]
     Active Substance: PANTOPRAZOLE SODIUM
     Dates: start: 2007
  9. AVINZA [Concomitant]
     Active Substance: MORPHINE SULFATE
     Dosage: AT BEDTIME
     Dates: start: 2009
  10. ZEBETA [Concomitant]
     Active Substance: BISOPROLOL FUMARATE
     Dates: start: 2007, end: 201007

REACTIONS (3)
  - Visual brightness [Recovered/Resolved]
  - Depression [Unknown]
  - Headache [Recovered/Resolved]

NARRATIVE: CASE EVENT DATE: 2010
